FAERS Safety Report 5491031-1 (Version None)
Quarter: 2007Q4

REPORT INFORMATION
  Report Type: 
  Country: None (occurrence: None)
  Receive Date: 20071019
  Receipt Date: 20071011
  Transmission Date: 20080405
  Serious: Yes (Other)
  Sender: FDA-Public Use
  Company Number: CO-GENENTECH-249332

PATIENT
  Age: 46 Year
  Sex: Female

DRUGS (3)
  1. RITUXAN [Suspect]
     Indication: PURPURA
     Dosage: UNK, 1/WEEK
     Route: 042
     Dates: start: 20070907
  2. IMMUNE GLOBULIN INTRAVENOUS (HUMAN) [Concomitant]
     Indication: PURPURA
  3. ORAL CONTRACEPTIVES NOS [Concomitant]
     Indication: CONTRACEPTION
     Dosage: UNK, QD
     Route: 048
     Dates: start: 20070501

REACTIONS (1)
  - ERYTHEMA NODOSUM [None]
